FAERS Safety Report 21437355 (Version 2)
Quarter: 2022Q4

REPORT INFORMATION
  Report Type: Report from Study
  Country: BR (occurrence: BR)
  Receive Date: 20221010
  Receipt Date: 20221207
  Transmission Date: 20230113
  Serious: Yes (Hospitalization)
  Sender: FDA-Public Use
  Company Number: BR-BIOGEN-2022BI01159774

PATIENT
  Age: 25 Year
  Sex: Female
  Weight: 58 kg

DRUGS (2)
  1. TYSABRI [Suspect]
     Active Substance: NATALIZUMAB
     Indication: Multiple sclerosis
     Route: 050
     Dates: start: 201904
  2. VITAMIN C [Concomitant]
     Active Substance: ASCORBIC ACID
     Indication: Multiple sclerosis
     Route: 050
     Dates: start: 201904

REACTIONS (2)
  - Vision blurred [Recovered/Resolved]
  - Eye pain [Unknown]

NARRATIVE: CASE EVENT DATE: 20220708
